FAERS Safety Report 5693865-7 (Version None)
Quarter: 2008Q2

REPORT INFORMATION
  Report Type: 
  Country: None (occurrence: None)
  Receive Date: 20080403
  Receipt Date: 20080327
  Transmission Date: 20081010
  Serious: Yes (Other)
  Sender: FDA-Public Use
  Company Number: IE-PFIZER INC-2008027987

PATIENT
  Sex: Male

DRUGS (4)
  1. DETRUSITOL [Suspect]
     Indication: HYPERTONIC BLADDER
  2. WARFARIN SODIUM [Suspect]
  3. LITHIUM [Concomitant]
  4. DIGOXIN [Concomitant]

REACTIONS (1)
  - INTERNATIONAL NORMALISED RATIO INCREASED [None]
